FAERS Safety Report 6083461-4 (Version None)
Quarter: 2009Q1

REPORT INFORMATION
  Report Type: 
  Country: None (occurrence: None)
  Receive Date: 20090219
  Receipt Date: 20090212
  Transmission Date: 20090719
  Serious: Yes (Hospitalization)
  Sender: FDA-Public Use
  Company Number: US-BIOGENIDEC-2009BI004885

PATIENT
  Age: 54 Year
  Sex: Female

DRUGS (2)
  1. AVONEX [Suspect]
     Indication: MULTIPLE SCLEROSIS
     Route: 030
     Dates: start: 20011219, end: 20030510
  2. AVONEX [Suspect]
     Route: 030
     Dates: start: 20031120

REACTIONS (2)
  - NERVE COMPRESSION [None]
  - OEDEMA PERIPHERAL [None]
